FAERS Safety Report 10216780 (Version 1)
Quarter: 2014Q2

REPORT INFORMATION
  Report Type: Spontaneous
  Country: BE (occurrence: BE)
  Receive Date: 20140604
  Receipt Date: 20140604
  Transmission Date: 20141212
  Serious: Yes (Other)
  Sender: FDA-Public Use
  Company Number: BE-JNJFOC-20140519723

PATIENT
  Sex: 0

DRUGS (3)
  1. LOPERAMIDE [Suspect]
     Indication: DIARRHOEA
     Route: 065
  2. SUNITINIB [Interacting]
     Indication: METASTATIC RENAL CELL CARCINOMA
     Route: 065
  3. MOXIFLOXACIN [Interacting]
     Indication: PRODUCT USED FOR UNKNOWN INDICATION
     Route: 065

REACTIONS (2)
  - Electrocardiogram QT prolonged [Unknown]
  - Drug interaction [Unknown]
